FAERS Safety Report 5404273-8 (Version None)
Quarter: 2007Q3

REPORT INFORMATION
  Report Type: 
  Country: None (occurrence: None)
  Receive Date: 20070802
  Receipt Date: 20070724
  Transmission Date: 20080115
  Serious: Yes (Hospitalization, Other)
  Sender: FDA-Public Use
  Company Number: PL-AMGEN-UK232618

PATIENT
  Sex: Female

DRUGS (9)
  1. PANITUMUMAB [Suspect]
     Indication: COLORECTAL CANCER
     Route: 042
     Dates: start: 20070619, end: 20070619
  2. MICARDIS [Concomitant]
     Route: 048
     Dates: start: 20070401
  3. DILTIAZEM [Concomitant]
     Route: 048
     Dates: start: 20030101
  4. LANSOPRAZOLE [Concomitant]
     Route: 048
     Dates: start: 20060101
  5. LOPERAMIDE HCL [Concomitant]
     Route: 048
     Dates: start: 20070618, end: 20070618
  6. ZOFRAN [Concomitant]
     Route: 042
     Dates: start: 20070619, end: 20070620
  7. DEXAMETHASONE 0.5MG TAB [Concomitant]
     Route: 042
     Dates: start: 20070619, end: 20070620
  8. HYDROXYZINE [Concomitant]
     Route: 048
     Dates: start: 20070620, end: 20070621
  9. GLYCERIN [Concomitant]
     Route: 054
     Dates: start: 20070621, end: 20070621

REACTIONS (3)
  - FEMORAL ARTERY OCCLUSION [None]
  - ILIAC ARTERY EMBOLISM [None]
  - PERIPHERAL ARTERIAL OCCLUSIVE DISEASE [None]
